FAERS Safety Report 19720398 (Version 1)
Quarter: 2021Q3

REPORT INFORMATION
  Report Type: Spontaneous
  Country: US (occurrence: US)
  Receive Date: 20210819
  Receipt Date: 20210819
  Transmission Date: 20211014
  Serious: No
  Sender: FDA-Public Use
  Company Number: US-ELI_LILLY_AND_COMPANY-US202108008448

PATIENT
  Sex: Male

DRUGS (3)
  1. HUMALOG [Suspect]
     Active Substance: INSULIN LISPRO
     Indication: TYPE 2 DIABETES MELLITUS
     Dosage: 20 U, PRN (DAILY)
     Route: 065
     Dates: start: 20210701
  2. HUMALOG [Suspect]
     Active Substance: INSULIN LISPRO
     Dosage: 3?5 UNITS OCCASIONALLY
     Route: 065
     Dates: start: 20210701
  3. HUMULIN N [Suspect]
     Active Substance: INSULIN HUMAN
     Indication: TYPE 2 DIABETES MELLITUS
     Dosage: 20 U, PRN (DAILY)
     Route: 065
     Dates: start: 20210701

REACTIONS (1)
  - Blood glucose increased [Recovering/Resolving]
